FAERS Safety Report 6063325-2 (Version None)
Quarter: 2009Q1

REPORT INFORMATION
  Report Type: 
  Country: None (occurrence: None)
  Receive Date: 20090203
  Receipt Date: 20090122
  Transmission Date: 20090719
  Serious: Yes (Other)
  Sender: FDA-Public Use
  Company Number: SK-PFIZER INC-2009158740

PATIENT

DRUGS (1)
  1. SUNITINIB MALATE [Suspect]
     Indication: RENAL CELL CARCINOMA
     Dosage: 50 MG, 1X/DAY
     Dates: start: 20061101, end: 20070501

REACTIONS (9)
  - ANAEMIA [None]
  - CORONARY ARTERY INSUFFICIENCY [None]
  - DIARRHOEA [None]
  - FATIGUE [None]
  - HYPERTENSION [None]
  - LEFT VENTRICULAR FAILURE [None]
  - NAUSEA [None]
  - THROMBOCYTOPENIA [None]
  - VOMITING [None]
